FAERS Safety Report 10599594 (Version 3)
Quarter: 2015Q1

REPORT INFORMATION
  Report Type: Report from Study
  Country: DE (occurrence: DE)
  Receive Date: 20141121
  Receipt Date: 20150122
  Transmission Date: 20150720
  Serious: Yes (Hospitalization)
  Sender: FDA-Public Use
  Company Number: DE-CELGENE-DEU-2014112460

PATIENT
  Sex: Female
  Weight: 58 kg

DRUGS (13)
  1. POMALIDOMIDE [Suspect]
     Active Substance: POMALIDOMIDE
     Indication: PLASMA CELL MYELOMA
     Route: 048
     Dates: start: 20140903, end: 20140924
  2. AQUAPHOR [Concomitant]
     Active Substance: PETROLATUM
     Indication: HYPERTENSION
     Route: 048
     Dates: start: 20121218
  3. POMALIDOMIDE [Suspect]
     Active Substance: POMALIDOMIDE
     Route: 048
     Dates: start: 20141126
  4. VOLTAREN [Concomitant]
     Active Substance: DICLOFENAC SODIUM
     Indication: PAIN
     Route: 048
     Dates: start: 20131209
  5. DEXAMETHASONE. [Suspect]
     Active Substance: DEXAMETHASONE
     Indication: PLASMA CELL MYELOMA
     Route: 065
     Dates: start: 20140903, end: 20140924
  6. DEXAMETHASONE. [Suspect]
     Active Substance: DEXAMETHASONE
     Route: 065
     Dates: start: 20141029, end: 20141105
  7. IBANDRONIC ACID [Concomitant]
     Active Substance: IBANDRONIC ACID
     Route: 041
     Dates: start: 20140727
  8. SULTAMICILLIN-RATIOPHARM [Concomitant]
     Indication: FOLLICULITIS
     Dosage: 10 MILLIGRAM
     Route: 048
     Dates: start: 20140904, end: 20140913
  9. DEXAMETHASONE. [Suspect]
     Active Substance: DEXAMETHASONE
     Route: 065
     Dates: start: 20141126
  10. NOVAMINSULFON [Concomitant]
     Active Substance: METAMIZOLE
     Indication: PAIN
     Route: 048
     Dates: start: 20121230
  11. POMALIDOMIDE [Suspect]
     Active Substance: POMALIDOMIDE
     Route: 048
     Dates: start: 20141029, end: 20141118
  12. CALCIUM [Concomitant]
     Active Substance: CALCIUM
     Route: 048
     Dates: start: 20140723
  13. PANTOPRAZOLE [Concomitant]
     Active Substance: PANTOPRAZOLE SODIUM
     Route: 048
     Dates: start: 20121230

REACTIONS (4)
  - Weight decreased [Not Recovered/Not Resolved]
  - Fall [Recovered/Resolved]
  - Fatigue [Recovered/Resolved]
  - Vertigo [Recovered/Resolved]

NARRATIVE: CASE EVENT DATE: 20140922
